FAERS Safety Report 6701576-1 (Version None)
Quarter: 2010Q2

REPORT INFORMATION
  Report Type: 
  Country: None (occurrence: None)
  Receive Date: 20100427
  Receipt Date: 20100415
  Transmission Date: 20101027
  Serious: Yes (Hospitalization, Other)
  Sender: FDA-Public Use
  Company Number: JPI-P-010358

PATIENT
  Age: 72 Year
  Sex: Female

DRUGS (2)
  1. XYREM [Suspect]
     Indication: SLEEP APNOEA SYNDROME
     Dosage: ORAL; 6 GM (3 GM, 1 IN 1D), ORAL
     Route: 048
     Dates: start: 20090310
  2. XYREM [Suspect]
     Indication: SLEEP APNOEA SYNDROME
     Dosage: ORAL; 6 GM (3 GM, 1 IN 1D), ORAL
     Route: 048
     Dates: start: 20100101

REACTIONS (1)
  - CARDIAC DISORDER [None]
